FAERS Safety Report 25922655 (Version 1)
Quarter: 2025Q4

REPORT INFORMATION
  Report Type: Spontaneous
  Country: EU (occurrence: EU)
  Receive Date: 20251015
  Receipt Date: 20251015
  Transmission Date: 20260117
  Serious: Yes (Other)
  Sender: AUROBINDO
  Company Number: EU-TEVA-2022-PL-2052735

PATIENT
  Age: 74 Year
  Sex: Female

DRUGS (5)
  1. PREGABALIN [Suspect]
     Active Substance: PREGABALIN
     Indication: Neuropathy peripheral
     Dosage: UNK, 3 TIMES A DAY, 450-600 MG/24 H IN 3 DIVIDED DOSES
     Route: 065
  2. PREGABALIN [Suspect]
     Active Substance: PREGABALIN
     Dosage: 450 MILLIGRAM, ONCE A DAY
     Route: 065
  3. PREGABALIN [Suspect]
     Active Substance: PREGABALIN
     Dosage: 50 MILLIGRAM, ONCE A DAY, (OVERNIGHT)
     Route: 065
  4. FLUDARABINE [Suspect]
     Active Substance: FLUDARABINE PHOSPHATE
     Indication: Marginal zone lymphoma
     Dosage: UNK
     Route: 065
  5. OXYCODONE [Suspect]
     Active Substance: OXYCODONE
     Indication: Neuropathy peripheral
     Dosage: 5 MILLIGRAM, ONCE A DAY, (CONTROLLED-RELEASE , EVERY 12 H, WITH DOSE UP-TITRATION)
     Route: 065

REACTIONS (3)
  - Neuropathy peripheral [Recovering/Resolving]
  - Neuralgia [Unknown]
  - Drug ineffective [Unknown]
